FAERS Safety Report 22648898 (Version 1)
Quarter: 2023Q2

REPORT INFORMATION
  Report Type: Spontaneous
  Country: GB (occurrence: GB)
  Receive Date: 20230628
  Receipt Date: 20230628
  Transmission Date: 20230721
  Serious: Yes (Hospitalization, Disabling)
  Sender: FDA-Public Use
  Company Number: GB-MHRA-MED-202306161133512440-SLBZR

PATIENT
  Age: 83 Year
  Sex: Female
  Weight: 53 kg

DRUGS (1)
  1. MEMANTINE [Suspect]
     Active Substance: MEMANTINE
     Indication: Dementia
     Dosage: INCORRECT DOSE -100MG BD. CORRECT DOSE -10MG TWICE A DAY
     Route: 065

REACTIONS (4)
  - Medication error [Unknown]
  - Visual impairment [Recovered/Resolved]
  - Agitation [Recovered/Resolved]
  - Seizure [Recovered/Resolved]

NARRATIVE: CASE EVENT DATE: 20230202
